FAERS Safety Report 18953971 (Version 1)
Quarter: 2021Q1

REPORT INFORMATION
  Report Type: Spontaneous
  Country: US (occurrence: US)
  Receive Date: 20210301
  Receipt Date: 20210301
  Transmission Date: 20210420
  Serious: Yes (Death, Other)
  Sender: FDA-Public Use
  Company Number: US-GLAXOSMITHKLINE-US2021GSK040675

PATIENT
  Sex: Male

DRUGS (4)
  1. ZANTAC [Suspect]
     Active Substance: RANITIDINE HYDROCHLORIDE
     Indication: HYPERCHLORHYDRIA
     Dosage: 150 MG, OCCASIONAL
     Route: 065
     Dates: start: 200001, end: 201202
  2. RANITIDINE. [Suspect]
     Active Substance: RANITIDINE
     Indication: HYPERCHLORHYDRIA
     Dosage: 150 MG, OCCASIONAL
     Route: 065
     Dates: start: 200001, end: 201202
  3. ZANTAC [Suspect]
     Active Substance: RANITIDINE HYDROCHLORIDE
     Indication: HYPERCHLORHYDRIA
     Dosage: 150 MG, OCCASIONAL
     Route: 065
     Dates: start: 200001, end: 201202
  4. RANITIDINE. [Suspect]
     Active Substance: RANITIDINE
     Indication: HYPERCHLORHYDRIA
     Dosage: 150 MG, OCCASIONAL
     Route: 065
     Dates: start: 200001, end: 201202

REACTIONS (3)
  - Brain neoplasm malignant [Fatal]
  - Renal cancer [Fatal]
  - Lung neoplasm malignant [Fatal]
